FAERS Safety Report 6128892-9 (Version None)
Quarter: 2009Q1

REPORT INFORMATION
  Report Type: 
  Country: None (occurrence: None)
  Receive Date: 20090320
  Receipt Date: 20090311
  Transmission Date: 20090719
  Serious: Yes (Congenital Anomaly, Other)
  Sender: FDA-Public Use
  Company Number: 188286USA

PATIENT
  Sex: Male

DRUGS (1)
  1. METHOTREXATE [Suspect]
     Indication: ABORTION INDUCED
     Dosage: I.U.
     Dates: start: 19991101, end: 19991101

REACTIONS (6)
  - CONGENITAL JAW MALFORMATION [None]
  - DELAYED FONTANELLE CLOSURE [None]
  - EAR MALFORMATION [None]
  - FAILURE TO THRIVE [None]
  - MATERNAL DRUGS AFFECTING FOETUS [None]
  - TREATMENT FAILURE [None]
